FAERS Safety Report 11513155 (Version 1)
Quarter: 2015Q3

REPORT INFORMATION
  Report Type: Spontaneous
  Country: US (occurrence: US)
  Receive Date: 20150903
  Receipt Date: 20150903
  Transmission Date: 20151125
  Serious: No
  Sender: FDA-Public Use
  Company Number: US-ELI_LILLY_AND_COMPANY-US201210004110

PATIENT
  Age: 51 Year
  Sex: Female

DRUGS (2)
  1. CYMBALTA [Suspect]
     Active Substance: DULOXETINE HYDROCHLORIDE
     Indication: ANXIETY
     Dosage: 60 MG, QD
     Dates: start: 201204
  2. INSULIN [Concomitant]
     Active Substance: INSULIN NOS

REACTIONS (4)
  - Visual impairment [Not Recovered/Not Resolved]
  - Blister [Recovering/Resolving]
  - Headache [Unknown]
  - Memory impairment [Unknown]

NARRATIVE: CASE EVENT DATE: 201209
